FAERS Safety Report 5725006-1 (Version None)
Quarter: 2008Q2

REPORT INFORMATION
  Report Type: 
  Country: None (occurrence: None)
  Receive Date: 20080501
  Receipt Date: 20080418
  Transmission Date: 20081010
  Serious: Yes (Other)
  Sender: FDA-Public Use
  Company Number: LB-ROCHE-559790

PATIENT
  Age: 49 Year
  Sex: Male

DRUGS (3)
  1. PEGASYS [Suspect]
     Dosage: FORM REPORTED AS: VIAL PATIENT RECEIVED THIS DOSAGE ONLY FOR ONE MONTH.
     Route: 058
     Dates: start: 20080126
  2. PEGASYS [Suspect]
     Route: 058
     Dates: end: 20080411
  3. TYLENOL [Concomitant]
     Dates: start: 20080126, end: 20080411

REACTIONS (4)
  - ALANINE AMINOTRANSFERASE INCREASED [None]
  - ASPARTATE AMINOTRANSFERASE INCREASED [None]
  - C-REACTIVE PROTEIN INCREASED [None]
  - TENDONITIS [None]
